FAERS Safety Report 9031743 (Version 1)
Quarter: 2013Q1

REPORT INFORMATION
  Report Type: Spontaneous
  Country: FR (occurrence: FR)
  Receive Date: 20130124
  Receipt Date: 20130124
  Transmission Date: 20140127
  Serious: Yes (Hospitalization)
  Sender: FDA-Public Use
  Company Number: FR-PFIZER INC-2013026030

PATIENT
  Age: 53 Year
  Sex: Female

DRUGS (12)
  1. ADVIL [Suspect]
     Indication: DYSPEPSIA
     Dosage: UNK
     Route: 048
     Dates: start: 20110714, end: 20110728
  2. ADVIL [Suspect]
     Indication: ABDOMINAL PAIN UPPER
  3. ADVIL [Suspect]
     Indication: SELF-MEDICATION
  4. VALDOXAN [Suspect]
     Indication: DEPRESSION
     Dosage: 25 MG PER DAY
     Route: 048
     Dates: start: 20110630, end: 20110728
  5. ASPRO [Suspect]
     Indication: DYSPEPSIA
     Dosage: 10 TABLETS PER DAY
     Route: 048
     Dates: start: 20110714, end: 20110728
  6. ASPRO [Suspect]
     Indication: ABDOMINAL PAIN UPPER
  7. ASPRO [Suspect]
     Indication: SELF-MEDICATION
  8. NUROFEN [Suspect]
     Indication: DYSPEPSIA
     Dosage: UNK
     Route: 048
     Dates: start: 20110714, end: 20110728
  9. NUROFEN [Suspect]
     Indication: ABDOMINAL PAIN UPPER
  10. NUROFEN [Suspect]
     Indication: SELF-MEDICATION
  11. RISPERDAL [Concomitant]
     Dosage: 1 MG, 1X/DAY
  12. STILNOX [Concomitant]
     Dosage: 1 DF, 1X/DAY IN THE EVENING

REACTIONS (6)
  - Hyponatraemia [Recovered/Resolved]
  - Syncope [Recovered/Resolved]
  - Haematemesis [Recovered/Resolved]
  - Melaena [Recovered/Resolved]
  - Gastrointestinal ulcer [Recovered/Resolved]
  - Inappropriate antidiuretic hormone secretion [Recovered/Resolved]
